FAERS Safety Report 4506552-5 (Version None)
Quarter: 2004Q4

REPORT INFORMATION
  Report Type: 
  Country: None (occurrence: None)
  Receive Date: 20041122
  Receipt Date: 20041115
  Transmission Date: 20050328
  Serious: Yes (Hospitalization)
  Sender: FDA-Public Use
  Company Number: 200414282FR

PATIENT
  Age: 81 Year
  Sex: Male

DRUGS (3)
  1. LASILIX FAIBLE [Suspect]
     Route: 048
     Dates: end: 20040802
  2. ALDACTONE [Suspect]
     Route: 048
     Dates: end: 20040802
  3. ZESTRIL [Suspect]
     Route: 048
     Dates: end: 20040802

REACTIONS (7)
  - ANOREXIA [None]
  - DEHYDRATION [None]
  - GENERAL PHYSICAL HEALTH DETERIORATION [None]
  - HYPERKALAEMIA [None]
  - METABOLIC ACIDOSIS [None]
  - RENAL FAILURE ACUTE [None]
  - VOMITING [None]
